FAERS Safety Report 6171104-0 (Version None)
Quarter: 2009Q2

REPORT INFORMATION
  Report Type: 
  Country: None (occurrence: None)
  Receive Date: 20090429
  Receipt Date: 20090424
  Transmission Date: 20091009
  Serious: Yes (Death, Hospitalization)
  Sender: FDA-Public Use
  Company Number: PHHY2009JP11726

PATIENT
  Age: 87 Year
  Sex: Female

DRUGS (4)
  1. DIOVAN T30230+TAB+HY [Suspect]
     Indication: HYPERTENSION
     Dosage: 40 MG, QD
     Route: 048
     Dates: start: 20080202, end: 20081104
  2. BLOPRESS [Concomitant]
     Indication: HYPERTENSION
     Dosage: 4 MG
     Route: 048
     Dates: start: 20080125, end: 20080201
  3. LASIX [Concomitant]
     Indication: HYPERTENSION
     Dosage: 20 MG
     Route: 048
     Dates: start: 20080125, end: 20081104
  4. FAMOTIDINE [Concomitant]
     Dosage: 20 MG
     Route: 048
     Dates: start: 20080125, end: 20081104

REACTIONS (1)
  - CHOLANGITIS ACUTE [None]
